FAERS Safety Report 5229498-6 (Version None)
Quarter: 2007Q1

REPORT INFORMATION
  Report Type: 
  Country: None (occurrence: None)
  Receive Date: 20070201
  Receipt Date: 20070116
  Transmission Date: 20070707
  Serious: Yes (Death)
  Sender: FDA-Public Use
  Company Number: 3855

PATIENT
  Age: 46 Year
  Sex: Female

DRUGS (2)
  1. AMNESTEEM [Suspect]
     Dosage: 20 MG, BID, PO; 20 MG QPM AND 40MG QAM
     Route: 048
     Dates: start: 20060519, end: 20060620
  2. AMNESTEEM [Suspect]
     Dosage: 20 MG, BID, PO; 20 MG QPM AND 40MG QAM
     Route: 048
     Dates: start: 20060620, end: 20060701

REACTIONS (5)
  - ELECTROCARDIOGRAM ABNORMAL [None]
  - HEART RATE INCREASED [None]
  - LUNG NEOPLASM MALIGNANT [None]
  - PERICARDIAL EFFUSION [None]
  - UPPER RESPIRATORY TRACT INFECTION [None]
